FAERS Safety Report 26176047 (Version 1)
Quarter: 2025Q4

REPORT INFORMATION
  Report Type: Spontaneous
  Country: US (occurrence: US)
  Receive Date: 20251218
  Receipt Date: 20251218
  Transmission Date: 20260118
  Serious: No
  Sender: USAntibiotics
  Company Number: US-USAN-USUSAN2025OTH000020

PATIENT

DRUGS (4)
  1. AUGMENTIN [Suspect]
     Active Substance: AMOXICILLIN\CLAVULANATE POTASSIUM
  2. BENADRYL [Concomitant]
     Active Substance: DIPHENHYDRAMINE HYDROCHLORIDE
  3. CORTISONE [Concomitant]
     Active Substance: CORTISONE
  4. TEA TREE OIL [Concomitant]
     Active Substance: TEA TREE OIL

REACTIONS (2)
  - Nausea [Unknown]
  - Urticaria [Unknown]
